FAERS Safety Report 21470010 (Version 2)
Quarter: 2022Q4

REPORT INFORMATION
  Report Type: Report from Study
  Country: US (occurrence: US)
  Receive Date: 20221018
  Receipt Date: 20221109
  Transmission Date: 20230113
  Serious: No
  Sender: FDA-Public Use
  Company Number: US-ABBVIE-4144458

PATIENT
  Sex: Female

DRUGS (1)
  1. IMBRUVICA [Suspect]
     Active Substance: IBRUTINIB
     Indication: Chronic lymphocytic leukaemia recurrent
     Route: 048
     Dates: start: 20180421

REACTIONS (4)
  - Joint range of motion decreased [Unknown]
  - Arthralgia [Unknown]
  - Thyroid disorder [Unknown]
  - Loss of personal independence in daily activities [Unknown]
